FAERS Safety Report 15676208 (Version 1)
Quarter: 2018Q4

REPORT INFORMATION
  Report Type: Spontaneous
  Country: US (occurrence: US)
  Receive Date: 20181129
  Receipt Date: 20181129
  Transmission Date: 20190205
  Serious: Yes (Other)
  Sender: FDA-Public Use
  Company Number: None

PATIENT
  Age: 50 Year
  Sex: Female
  Weight: 67.5 kg

DRUGS (7)
  1. RABEPRAZOLE TAB 20MG DR [Suspect]
     Active Substance: RABEPRAZOLE
     Indication: GASTRITIS
     Dosage: ?          QUANTITY:90 TABLET(S);?
     Route: 048
  2. RABEPRAZOLE TAB 20MG DR [Suspect]
     Active Substance: RABEPRAZOLE
     Indication: GASTROOESOPHAGEAL REFLUX DISEASE
     Dosage: ?          QUANTITY:90 TABLET(S);?
     Route: 048
  3. RABEPRAZOLE TAB 20MG DR [Suspect]
     Active Substance: RABEPRAZOLE
     Indication: OESOPHAGITIS
     Dosage: ?          QUANTITY:90 TABLET(S);?
     Route: 048
  4. VITAMINS D [Concomitant]
  5. VITAMINS B [Concomitant]
  6. ZYRTEK [Concomitant]
     Active Substance: CETIRIZINE HYDROCHLORIDE
  7. CALCIUM [Concomitant]
     Active Substance: CALCIUM

REACTIONS (3)
  - Product substitution issue [None]
  - Gastrointestinal disorder [None]
  - Vomiting [None]

NARRATIVE: CASE EVENT DATE: 20181123
